FAERS Safety Report 14552344 (Version 4)
Quarter: 2022Q1

REPORT INFORMATION
  Report Type: Spontaneous
  Country: PL (occurrence: PL)
  Receive Date: 20180220
  Receipt Date: 20220317
  Transmission Date: 20220423
  Serious: Yes (Hospitalization, Other)
  Sender: FDA-Public Use
  Company Number: PL-AUROBINDO-AUR-APL-2018-003771

PATIENT
  Age: 39 Year
  Sex: Male

DRUGS (10)
  1. ATORVASTATIN [Suspect]
     Active Substance: ATORVASTATIN
     Indication: Atrial fibrillation
     Dosage: 1 DOSAGE FORM (1 DF, QD EVENING)
     Route: 065
  2. BISOPROLOL [Suspect]
     Active Substance: BISOPROLOL
     Indication: Atrial fibrillation
     Dosage: 1 DOSAGE FORM, ONCE A DAY
     Route: 065
  3. METOPROLOL [Suspect]
     Active Substance: METOPROLOL
     Indication: Arrhythmia
     Dosage: 25 MILLIGRAM, ONCE A DAY (25 MILLIGRAM DAILY; METOPROLOL SUCCINATE 25 MG ONCE DAILY IN COMBINATION W
     Route: 065
  4. METOPROLOL [Suspect]
     Active Substance: METOPROLOL
     Indication: Atrial fibrillation
  5. ASPIRIN [Suspect]
     Active Substance: ASPIRIN
     Indication: Anticoagulant therapy
     Dosage: 150 MILLIGRAM
     Route: 065
  6. AMLODIPINE BESYLATE\LISINOPRIL [Suspect]
     Active Substance: AMLODIPINE BESYLATE\LISINOPRIL
     Indication: Atrial fibrillation
     Dosage: ONE TABLET IN THE MORNING AND HALF TABLET IN EVENING ()
     Route: 065
  7. DABIGATRAN [Suspect]
     Active Substance: DABIGATRAN
     Indication: Atrial fibrillation
     Dosage: 150 MILLIGRAM (BID FOR 8 WEEKS)
     Route: 065
  8. DABIGATRAN [Suspect]
     Active Substance: DABIGATRAN
     Dosage: 300 MILLIGRAM (5.3571 MILLIGRAM DAILY, 8 WEEK)
     Route: 065
  9. PROPAFENONE [Suspect]
     Active Substance: PROPAFENONE
     Indication: Atrial fibrillation
     Dosage: 450 MILLIGRAM, ONCE A DAY(450 MILLIGRAM DAILY; METOPROLOL SUCCINATE 25 MG ONCE DAILY IN COMBINATION
     Route: 016
  10. PROPAFENONE [Suspect]
     Active Substance: PROPAFENONE
     Indication: Arrhythmia

REACTIONS (9)
  - Dyspnoea [Unknown]
  - Drug ineffective [Unknown]
  - Fatigue [Unknown]
  - Heart rate irregular [Unknown]
  - Epistaxis [Recovered/Resolved]
  - Facial asymmetry [Recovered/Resolved]
  - Speech disorder [Recovered/Resolved]
  - Muscular weakness [Recovered/Resolved]
  - Transient ischaemic attack [Unknown]
